FAERS Safety Report 21166780 (Version 1)
Quarter: 2022Q3

REPORT INFORMATION
  Report Type: Spontaneous
  Country: US (occurrence: US)
  Receive Date: 20220803
  Receipt Date: 20220803
  Transmission Date: 20221026
  Serious: Yes (Hospitalization, Other)
  Sender: FDA-Public Use
  Company Number: US-PFIZER INC-PV202200034110

PATIENT
  Age: 41 Year
  Sex: Male
  Weight: 63.9 kg

DRUGS (4)
  1. PAXLOVID [Suspect]
     Active Substance: NIRMATRELVIR\RITONAVIR
     Indication: COVID-19 treatment
     Dosage: [PF-07321332 300 MG]/[RITONAVIR 100 MG]; 2X/DAY
     Route: 048
     Dates: start: 20220725, end: 20220727
  2. ASPIRIN [Concomitant]
     Active Substance: ASPIRIN
     Dosage: 324 MG, 1X/DAY (CHEWABLE)
     Route: 048
     Dates: start: 20220727, end: 20220727
  3. CLOPIDOGREL [Concomitant]
     Active Substance: CLOPIDOGREL BISULFATE
     Dosage: 300 MG, 1X/DAY
     Route: 048
     Dates: start: 20220727, end: 20220727
  4. ENOXAPARIN [Concomitant]
     Active Substance: ENOXAPARIN
     Dosage: 40 MG, 1X/DAY
     Route: 058
     Dates: start: 20220727, end: 20220727

REACTIONS (5)
  - Hemianopia homonymous [Recovered/Resolved]
  - Blindness [Unknown]
  - Transient ischaemic attack [Unknown]
  - Eye disorder [Unknown]
  - Migraine [Unknown]

NARRATIVE: CASE EVENT DATE: 20220727
